FAERS Safety Report 6209452-8 (Version None)
Quarter: 2009Q2

REPORT INFORMATION
  Report Type: 
  Country: None (occurrence: None)
  Receive Date: 20090601
  Receipt Date: 20090521
  Transmission Date: 20091009
  Serious: Yes (Hospitalization)
  Sender: FDA-Public Use
  Company Number: VN-ROCHE-633223

PATIENT
  Age: 24 Month
  Sex: Male
  Weight: 10.3 kg

DRUGS (6)
  1. OSELTAMIVIR [Suspect]
     Indication: AVIAN INFLUENZA
     Dosage: DATE OF LAST DOSE PRIOR TO SAE 03 MAY 2009
     Route: 065
     Dates: start: 20090429
  2. BLINDED OSELTAMIVIR [Suspect]
     Indication: AVIAN INFLUENZA
     Dosage: DATE OF LAST DOSE PRIOR TO SAE 03 MAY 2009
     Route: 065
     Dates: start: 20090429
  3. CEFOTAXIME [Concomitant]
     Route: 042
     Dates: start: 20090429, end: 20090510
  4. VENTOLIN [Concomitant]
     Indication: WHEEZING
     Route: 048
     Dates: start: 20090429, end: 20090512
  5. N-ACETYLCYSTEINE [Concomitant]
     Indication: WHEEZING
     Dosage: DRUG; N-ACETYLCYSTEIN
     Route: 048
     Dates: start: 20090429, end: 20090512
  6. PARACETAMOL [Concomitant]
     Route: 048
     Dates: start: 20090428, end: 20090503

REACTIONS (1)
  - THROMBOCYTHAEMIA [None]
